FAERS Safety Report 9004840 (Version 1)
Quarter: 2012Q4

REPORT INFORMATION
  Report Type: Spontaneous
  Country: US (occurrence: None)
  Receive Date: 20121226
  Receipt Date: 20121226
  Transmission Date: 20130627
  Serious: Yes (Death)
  Sender: FDA-Public Use
  Company Number: 1212-824

PATIENT
  Age: 85 Year
  Sex: Female

DRUGS (1)
  1. EYLEA (AFLIBERCEPT) (AFLIBERCEPT) [Suspect]
     Indication: EXUDATIVE SENILE MACULAR DEGENERATION OF RETINA

REACTIONS (1)
  - Death [None]
